FAERS Safety Report 9639751 (Version 2)
Quarter: 2014Q1

REPORT INFORMATION
  Report Type: Spontaneous
  Country: CA (occurrence: CA)
  Receive Date: 20131023
  Receipt Date: 20140130
  Transmission Date: 20141002
  Serious: Yes (Other)
  Sender: FDA-Public Use
  Company Number: CA-JNJFOC-20131007444

PATIENT
  Age: 9 Year
  Sex: Female
  Weight: 37.2 kg

DRUGS (2)
  1. TYLENOL CHILD UNSPECIFIED [Suspect]
     Route: 048
  2. TYLENOL CHILD UNSPECIFIED [Suspect]
     Indication: COUGH
     Dosage: RECOMMEND DOSAGE TOOK ONCE
     Route: 048
     Dates: start: 20131009, end: 20131009

REACTIONS (1)
  - Dyspnoea [Recovered/Resolved]
